FAERS Safety Report 22288257 (Version 1)
Quarter: 2023Q2

REPORT INFORMATION
  Report Type: Spontaneous
  Country: US (occurrence: US)
  Receive Date: 20230505
  Receipt Date: 20230505
  Transmission Date: 20230721
  Serious: Yes (Other)
  Sender: FDA-Public Use
  Company Number: US-NALPROPION PHARMACEUTICALS INC.-US-2023CUR001634

PATIENT
  Age: 57 Year

DRUGS (1)
  1. CONTRAVE [Suspect]
     Active Substance: BUPROPION HYDROCHLORIDE\NALTREXONE HYDROCHLORIDE
     Indication: Weight control
     Dosage: STRENGTH 8/90 MG, UNKNOWN DOSE AND FREQUENCY (FIRST DOSE)
     Route: 065
     Dates: start: 20230421

REACTIONS (11)
  - Loss of consciousness [Unknown]
  - Burning sensation [Unknown]
  - Drooling [Unknown]
  - Oropharyngeal discomfort [Not Recovered/Not Resolved]
  - Dizziness [Unknown]
  - Disturbance in attention [Unknown]
  - Nausea [Unknown]
  - Vomiting [Unknown]
  - Abdominal pain upper [Unknown]
  - Malaise [Not Recovered/Not Resolved]
  - Feeling abnormal [Unknown]

NARRATIVE: CASE EVENT DATE: 20230421
